FAERS Safety Report 8445573-7 (Version None)
Quarter: 2012Q2

REPORT INFORMATION
  Report Type: 
  Country: None (occurrence: None)
  Receive Date: 20120618
  Receipt Date: 20120611
  Transmission Date: 20120825
  Serious: Yes (Hospitalization)
  Sender: FDA-Public Use
  Company Number: JP-JNJFOC-20120512665

PATIENT
  Sex: Female
  Weight: 46 kg

DRUGS (16)
  1. GALANTAMINE HYDROBROMIDE [Suspect]
     Route: 048
     Dates: start: 20120302, end: 20120506
  2. FERROUS CITRATE [Concomitant]
     Indication: IRON DEFICIENCY ANAEMIA
     Route: 048
  3. COLONEL [Concomitant]
     Route: 048
     Dates: start: 20120414
  4. LEVOTHYROXINE SODIUM [Concomitant]
     Indication: HYPOTHYROIDISM
     Route: 048
  5. CALBLOCK [Concomitant]
     Indication: HYPERTENSION
     Route: 048
  6. INDAPAMIDE [Concomitant]
     Indication: HYPERTENSION
     Route: 048
  7. GALANTAMINE HYDROBROMIDE [Suspect]
     Indication: DEMENTIA ALZHEIMER'S TYPE
     Route: 048
     Dates: start: 20120327, end: 20120423
  8. GALANTAMINE HYDROBROMIDE [Suspect]
     Route: 048
     Dates: start: 20120506, end: 20120521
  9. UNKNOWN MEDICATION [Concomitant]
     Route: 048
     Dates: start: 20120327, end: 20120327
  10. UNKNOWN MEDICATION [Concomitant]
     Indication: PAIN IN EXTREMITY
     Route: 048
     Dates: start: 20120430, end: 20120501
  11. MIYA BM [Concomitant]
     Indication: CONSTIPATION
     Route: 048
  12. GALANTAMINE HYDROBROMIDE [Suspect]
     Route: 048
     Dates: start: 20120423, end: 20120502
  13. ETHYL ICOSAPENTATE [Concomitant]
     Route: 048
  14. COLONEL [Concomitant]
     Indication: CONSTIPATION
     Route: 048
     Dates: end: 20120413
  15. HOKUNALIN TAPE [Concomitant]
     Route: 062
     Dates: start: 20120427, end: 20120427
  16. VITAMIN B12 [Concomitant]
     Route: 048

REACTIONS (5)
  - DECREASED APPETITE [None]
  - CYSTITIS [None]
  - CONDITION AGGRAVATED [None]
  - PAIN IN EXTREMITY [None]
  - CONSTIPATION [None]
